FAERS Safety Report 13055204 (Version 12)
Quarter: 2021Q4

REPORT INFORMATION
  Report Type: Spontaneous
  Country: JP (occurrence: JP)
  Receive Date: 20161222
  Receipt Date: 20211210
  Transmission Date: 20220303
  Serious: Yes (Hospitalization, Other)
  Sender: FDA-Public Use
  Company Number: JP-UNITED THERAPEUTICS-UNT-2016-019101

PATIENT
  Sex: Male
  Weight: 52 kg

DRUGS (15)
  1. REMODULIN [Suspect]
     Active Substance: TREPROSTINIL
     Indication: Pulmonary arterial hypertension
     Dosage: UNK UNK, CONTINUING
     Route: 041
     Dates: start: 20161122, end: 20161207
  2. REMODULIN [Suspect]
     Active Substance: TREPROSTINIL
     Indication: Pulmonary arterial hypertension
     Dosage: UNK, CONTINUING
     Route: 058
     Dates: start: 20161208, end: 201612
  3. REMODULIN [Suspect]
     Active Substance: TREPROSTINIL
     Dosage: 0.0139 ?G/KG, CONTINUING
     Route: 058
     Dates: start: 201612
  4. REMODULIN [Suspect]
     Active Substance: TREPROSTINIL
     Dosage: 0.1389 ?G/KG, CONTINUING
     Route: 058
     Dates: end: 2018
  5. REMODULIN [Suspect]
     Active Substance: TREPROSTINIL
     Dosage: UNK, CONTINUING (DOSE REDUCED BY 5-10%)
     Route: 058
     Dates: start: 2018, end: 20180511
  6. TRAMADOL [Suspect]
     Active Substance: TRAMADOL
     Indication: Injection site pain
     Dosage: 25 MG 4 TABLETS DIVIDED INTO FOUR DOSES/DAY
     Route: 048
     Dates: start: 20161211
  7. AMBRISENTAN [Concomitant]
     Active Substance: AMBRISENTAN
     Indication: Pulmonary arterial hypertension
     Dosage: UNK
     Route: 048
     Dates: start: 201608
  8. ADEMPAS [Concomitant]
     Active Substance: RIOCIGUAT
     Indication: Pulmonary arterial hypertension
     Dosage: UNK
     Route: 048
     Dates: start: 201505
  9. ALLOPURINOL [Concomitant]
     Active Substance: ALLOPURINOL
     Indication: Product used for unknown indication
     Dosage: UNK
     Route: 048
  10. TORSEMIDE [Concomitant]
     Active Substance: TORSEMIDE
     Indication: Pulmonary arterial hypertension
     Dosage: UNK
     Route: 048
  11. SPIRONOLACTONE [Concomitant]
     Active Substance: SPIRONOLACTONE
     Indication: Pulmonary arterial hypertension
     Dosage: UNK
     Route: 048
  12. FUROSEMIDE [Concomitant]
     Active Substance: FUROSEMIDE
     Indication: Pulmonary arterial hypertension
     Dosage: UNK
     Route: 048
  13. SLOW-K [Concomitant]
     Active Substance: POTASSIUM CHLORIDE
     Indication: Product used for unknown indication
     Dosage: UNK
     Route: 048
  14. NEXIUM [Concomitant]
     Active Substance: ESOMEPRAZOLE MAGNESIUM
     Indication: Prophylaxis
     Dosage: UNK
     Route: 048
  15. EPOPROSTENOL [Concomitant]
     Active Substance: EPOPROSTENOL
     Indication: Pulmonary arterial hypertension
     Dosage: UNK
     Route: 042
     Dates: start: 20180416

REACTIONS (13)
  - Brain natriuretic peptide increased [Unknown]
  - X-ray abnormal [Unknown]
  - Malaise [Recovered/Resolved]
  - Pulmonary oedema [Not Recovered/Not Resolved]
  - Pericardial effusion [Unknown]
  - Injection site swelling [Recovering/Resolving]
  - Injection site pain [Recovering/Resolving]
  - Injection site erythema [Recovering/Resolving]
  - Injection site warmth [Recovered/Resolved]
  - Somnolence [Unknown]
  - Constipation [Unknown]
  - Injection site erosion [Unknown]
  - Infusion site discharge [Unknown]

NARRATIVE: CASE EVENT DATE: 20160101
